FAERS Safety Report 24789056 (Version 1)
Quarter: 2024Q4

REPORT INFORMATION
  Report Type: Spontaneous
  Country: CN (occurrence: CN)
  Receive Date: 20241230
  Receipt Date: 20241230
  Transmission Date: 20250114
  Serious: Yes (Hospitalization, Other)
  Sender: EPIC PHARM
  Company Number: CN-EPICPHARMA-CN-2024EPCLIT01596

PATIENT
  Age: 53 Year
  Sex: Female

DRUGS (7)
  1. ETHAMBUTOL HYDROCHLORIDE [Suspect]
     Active Substance: ETHAMBUTOL HYDROCHLORIDE
     Indication: Granuloma
     Route: 065
     Dates: start: 202109
  2. ETHAMBUTOL HYDROCHLORIDE [Suspect]
     Active Substance: ETHAMBUTOL HYDROCHLORIDE
     Indication: Mycobacterium avium complex infection
  3. AZITHROMYCIN [Suspect]
     Active Substance: AZITHROMYCIN
     Indication: Mycobacterium avium complex infection
     Route: 065
  4. ISONIAZID [Concomitant]
     Active Substance: ISONIAZID
     Indication: Granuloma
     Route: 065
  5. RIFAPENTINE [Concomitant]
     Active Substance: RIFAPENTINE
     Indication: Granuloma
     Route: 065
  6. PYRAZINAMIDE [Concomitant]
     Active Substance: PYRAZINAMIDE
     Indication: Granuloma
     Route: 065
  7. AMIKACIN [Concomitant]
     Active Substance: AMIKACIN
     Route: 065

REACTIONS (6)
  - Mycobacterium avium complex infection [Recovered/Resolved]
  - Aspergillus infection [Recovered/Resolved]
  - Infection [Recovered/Resolved]
  - Conjunctivitis [Recovered/Resolved]
  - Pyrexia [Recovered/Resolved]
  - Product use in unapproved indication [Unknown]
